FAERS Safety Report 20462711 (Version 3)
Quarter: 2022Q2

REPORT INFORMATION
  Report Type: Spontaneous
  Country: JP (occurrence: JP)
  Receive Date: 20220211
  Receipt Date: 20220622
  Transmission Date: 20220721
  Serious: Yes (Life-Threatening, Hospitalization, Other)
  Sender: FDA-Public Use
  Company Number: JP-GILEAD-2022-0569052

PATIENT
  Age: 81 Year
  Sex: Female

DRUGS (6)
  1. VEKLURY [Suspect]
     Active Substance: REMDESIVIR
     Indication: COVID-19 pneumonia
     Dosage: 200 MG, QD
     Route: 041
     Dates: start: 20220204, end: 20220204
  2. VEKLURY [Suspect]
     Active Substance: REMDESIVIR
     Dosage: 100 MG, QD
     Route: 041
     Dates: start: 20220205, end: 20220206
  3. LEVOFLOXACIN HEMIHYDRATE [Suspect]
     Active Substance: LEVOFLOXACIN
     Indication: Urinary tract infection
     Dosage: 500 MG, QD
     Route: 041
     Dates: start: 20220204, end: 20220206
  4. DEXAMETHASONE SODIUM PHOSPHATE [Concomitant]
     Active Substance: DEXAMETHASONE SODIUM PHOSPHATE
     Indication: COVID-19 pneumonia
     Dosage: 6.6 MG, QD
     Route: 041
     Dates: start: 20220204, end: 20220206
  5. GASTER [Concomitant]
     Active Substance: FAMOTIDINE
     Indication: Gastritis
     Dosage: UNK
     Route: 048
  6. GASTER [Concomitant]
     Active Substance: FAMOTIDINE
     Dosage: 10 MG, BID
     Route: 041
     Dates: start: 20220205, end: 20220206

REACTIONS (4)
  - Liver disorder [Recovered/Resolved]
  - Pneumonia aspiration [Unknown]
  - Bacteraemia [Unknown]
  - Coagulopathy [Unknown]

NARRATIVE: CASE EVENT DATE: 20220201
